FAERS Safety Report 9307039 (Version 2)
Quarter: 2013Q4

REPORT INFORMATION
  Report Type: Spontaneous
  Country: US (occurrence: US)
  Receive Date: 20130523
  Receipt Date: 20131113
  Transmission Date: 20140711
  Serious: Yes (Hospitalization)
  Sender: FDA-Public Use
  Company Number: US-B.I. PHARMACEUTICALS,INC./RIDGEFIELD-2013-BI-14267BP

PATIENT
  Age: 83 Year
  Sex: Female
  Weight: 63.5 kg

DRUGS (7)
  1. PRADAXA [Suspect]
     Indication: ANTICOAGULANT THERAPY
     Dosage: 150 MG
     Dates: start: 20110421, end: 20111230
  2. PRADAXA [Suspect]
     Indication: ATRIAL FIBRILLATION
  3. ARICEPT [Concomitant]
     Dosage: 10 MG
  4. COREG [Concomitant]
     Dosage: 50 MG
  5. LASIX [Concomitant]
     Dosage: 60 MG
  6. NAMENDA [Concomitant]
     Dosage: 10 MG
  7. LIPITOR [Concomitant]
     Dosage: 40 MG

REACTIONS (5)
  - Lower gastrointestinal haemorrhage [Unknown]
  - Lower gastrointestinal haemorrhage [Unknown]
  - Anaemia [Unknown]
  - Anaemia [Unknown]
  - Syncope [Unknown]
